FAERS Safety Report 7491418-1 (Version None)
Quarter: 2011Q2

REPORT INFORMATION
  Report Type: 
  Country: None (occurrence: None)
  Receive Date: 20110519
  Receipt Date: 20110506
  Transmission Date: 20111010
  Serious: Yes (Other)
  Sender: FDA-Public Use
  Company Number: PHHY2011DE39662

PATIENT
  Age: 74 Year
  Sex: Male

DRUGS (4)
  1. CORTISONE ACETATE [Concomitant]
  2. PAMIDRONATE DISODIUM [Suspect]
     Dosage: UNK
     Route: 042
     Dates: start: 20060201, end: 20070315
  3. CHEMOTHERAPEUTICS NOS [Concomitant]
  4. ZOLEDRONIC ACID [Suspect]
     Dosage: UNK
     Route: 042
     Dates: start: 20030601, end: 20060201

REACTIONS (1)
  - OSTEONECROSIS OF JAW [None]
